FAERS Safety Report 6576350-X (Version None)
Quarter: 2010Q1

REPORT INFORMATION
  Report Type: 
  Country: None (occurrence: None)
  Receive Date: 20100210
  Receipt Date: 20091014
  Transmission Date: 20100710
  Serious: No
  Sender: FDA-Public Use
  Company Number: A0829313A

PATIENT
  Sex: Female

DRUGS (1)
  1. OLUX E [Suspect]
     Indication: RASH
     Route: 061
     Dates: start: 20091001

REACTIONS (1)
  - APPLICATION SITE PAIN [None]
